FAERS Safety Report 12324881 (Version 8)
Quarter: 2017Q1

REPORT INFORMATION
  Report Type: Spontaneous
  Country: JP (occurrence: JP)
  Receive Date: 20160502
  Receipt Date: 20170207
  Transmission Date: 20170428
  Serious: Yes (Hospitalization)
  Sender: FDA-Public Use
  Company Number: JP-ABBVIE-16P-087-1615457-00

PATIENT
  Age: 82 Year
  Sex: Female

DRUGS (8)
  1. NICORANDIL [Concomitant]
     Active Substance: NICORANDIL
     Indication: PRINZMETAL ANGINA
     Dates: start: 20120214
  2. VALSARTAN. [Concomitant]
     Active Substance: VALSARTAN
     Indication: HYPERTENSION
     Route: 048
     Dates: start: 20120204
  3. POLYENEPHOSPHATIDYL CHOLINE [Concomitant]
     Indication: CHRONIC HEPATITIS
     Route: 048
  4. BENIDIPINE HYDROCHLORIDE [Concomitant]
     Active Substance: BENIDIPINE HYDROCHLORIDE
     Indication: PRINZMETAL ANGINA
     Dates: start: 20120214, end: 20120414
  5. URSODEOXYCHOLIC ACID [Concomitant]
     Active Substance: URSODIOL
     Indication: CHRONIC HEPATITIS
     Route: 048
  6. VIEKIRAX [Suspect]
     Active Substance: OMBITASVIR\PARITAPREVIR\RITONAVIR
     Indication: CHRONIC HEPATITIS C
     Route: 048
     Dates: start: 20160331, end: 20160407
  7. ISOSORBIDE DINITRATE. [Concomitant]
     Active Substance: ISOSORBIDE DINITRATE
     Indication: PRINZMETAL ANGINA
     Route: 062
     Dates: start: 20120204
  8. DOXAZOSIN MESILATE [Concomitant]
     Active Substance: DOXAZOSIN MESYLATE
     Indication: HYPERTENSION
     Route: 048
     Dates: start: 20120204

REACTIONS (4)
  - Dyspnoea exertional [Unknown]
  - Pulmonary oedema [Recovering/Resolving]
  - Oedema [Recovering/Resolving]
  - Pleural effusion [Recovered/Resolved]

NARRATIVE: CASE EVENT DATE: 201604
